FAERS Safety Report 20908289 (Version 1)
Quarter: 2022Q2

REPORT INFORMATION
  Report Type: Spontaneous
  Country: JP (occurrence: JP)
  Receive Date: 20220603
  Receipt Date: 20220603
  Transmission Date: 20220720
  Serious: Yes (Other)
  Sender: FDA-Public Use
  Company Number: JP-DSJP-DSJ-2022-118503

PATIENT

DRUGS (4)
  1. DENOSUMAB [Suspect]
     Active Substance: DENOSUMAB
     Indication: Bone giant cell tumour
     Dosage: 120 MG, ONCE EVERY 1 MO
     Route: 058
  2. DENOSUMAB [Suspect]
     Active Substance: DENOSUMAB
     Dosage: 120 MG, ONCE EVERY 2 MO
     Route: 058
  3. DENOSUMAB [Suspect]
     Active Substance: DENOSUMAB
     Dosage: 120 MG, ONCE EVERY 4 MO
     Route: 058
  4. CALCIUM CARBONATE\CHOLECALCIFEROL\MAGNESIUM CARBONATE [Concomitant]
     Active Substance: CALCIUM CARBONATE\CHOLECALCIFEROL\MAGNESIUM CARBONATE
     Dosage: UNK UNK, BID
     Route: 048

REACTIONS (2)
  - Metastases to lung [Not Recovered/Not Resolved]
  - Off label use [Unknown]
